FAERS Safety Report 13962357 (Version 3)
Quarter: 2018Q1

REPORT INFORMATION
  Report Type: Report from Study
  Country: None (occurrence: DE)
  Receive Date: 20170912
  Receipt Date: 20180116
  Transmission Date: 20180508
  Serious: Yes (Hospitalization)
  Sender: FDA-Public Use
  Company Number: DE-ABBVIE-17K-062-2094999-00

PATIENT
  Age: 57 Year
  Sex: Male

DRUGS (10)
  1. CORTISON [Suspect]
     Active Substance: CORTISONE ACETATE
     Indication: OTITIS MEDIA CHRONIC
     Route: 042
     Dates: start: 20170718, end: 20170721
  2. HUMINSULIN [Concomitant]
     Active Substance: INSULIN HUMAN
     Indication: PRODUCT USED FOR UNKNOWN INDICATION
     Dosage: UNKNOWN
     Route: 058
  3. DOMPERIDON [Concomitant]
     Active Substance: DOMPERIDONE
     Indication: PRODUCT USED FOR UNKNOWN INDICATION
  4. DUODOPA [Suspect]
     Active Substance: CARBIDOPA\LEVODOPA
     Dosage: MD 8 ML; CRD 4.9 ML/H; ED 2.5 ML
     Route: 050
     Dates: start: 201801
  5. CORTISON [Suspect]
     Active Substance: CORTISONE ACETATE
     Route: 048
     Dates: start: 201707
  6. DUODOPA [Suspect]
     Active Substance: CARBIDOPA\LEVODOPA
     Indication: PARKINSON^S DISEASE
     Dosage: MD 8 ML, CRD 4.7 ML / H; ED 2.5 ML
     Route: 050
     Dates: start: 20150618, end: 201801
  7. FOLIC ACID. [Concomitant]
     Active Substance: FOLIC ACID
     Indication: PRODUCT USED FOR UNKNOWN INDICATION
  8. STALEVO [Concomitant]
     Active Substance: CARBIDOPA\ENTACAPONE\LEVODOPA
     Indication: PRODUCT USED FOR UNKNOWN INDICATION
  9. METFORMIN [Concomitant]
     Active Substance: METFORMIN HYDROCHLORIDE
     Indication: PRODUCT USED FOR UNKNOWN INDICATION
  10. AMANTADIN [Concomitant]
     Active Substance: AMANTADINE
     Indication: PRODUCT USED FOR UNKNOWN INDICATION

REACTIONS (6)
  - Hyperkinesia [Not Recovered/Not Resolved]
  - Blood glucose increased [Not Recovered/Not Resolved]
  - Bacterial infection [Not Recovered/Not Resolved]
  - Akinesia [Not Recovered/Not Resolved]
  - Skin bacterial infection [Not Recovered/Not Resolved]
  - Spinal column stenosis [Unknown]

NARRATIVE: CASE EVENT DATE: 20151013
